FAERS Safety Report 5334967-4 (Version None)
Quarter: 2007Q1

REPORT INFORMATION
  Report Type: 
  Country: None (occurrence: None)
  Receive Date: 20070308
  Receipt Date: 20070110
  Transmission Date: 20070707
  Serious: No
  Sender: FDA-Public Use
  Company Number: 2007-BP-00194BP

PATIENT
  Age: 72 Year
  Sex: Male

DRUGS (9)
  1. SPIRIVA [Suspect]
     Indication: CHRONIC OBSTRUCTIVE PULMONARY DISEASE
     Dosage: 18 MCG (18 MCG,QD), IH
     Route: 055
     Dates: start: 20061227
  2. SEREVENT [Concomitant]
  3. DUONEB (COMBIVENT /0126101/) [Concomitant]
  4. ADVAIR DISKUS 100/50 [Concomitant]
  5. BACTRIM [Concomitant]
  6. PREDNISONE TAB [Concomitant]
  7. ASPIRIN [Concomitant]
  8. ACTOS [Concomitant]
  9. GLIMEPIRIDE [Concomitant]

REACTIONS (2)
  - DRUG INEFFECTIVE [None]
  - DYSPNOEA [None]
